FAERS Safety Report 7576838-9 (Version None)
Quarter: 2011Q2

REPORT INFORMATION
  Report Type: 
  Country: None (occurrence: None)
  Receive Date: 20110628
  Receipt Date: 20110614
  Transmission Date: 20111010
  Serious: Yes (Hospitalization, Other)
  Sender: FDA-Public Use
  Company Number: JP-CELGENEUS-087-21880-11022502

PATIENT
  Sex: Male

DRUGS (15)
  1. REVLIMID [Suspect]
     Indication: MULTIPLE MYELOMA
     Dosage: 10 MILLIGRAM
     Route: 048
     Dates: start: 20101130, end: 20101209
  2. PROTECADIN [Concomitant]
     Indication: PROPHYLAXIS
     Dosage: 10 MILLIGRAM
     Route: 048
     Dates: start: 20070710, end: 20101213
  3. THEOLONG [Concomitant]
     Dosage: 200 MILLIGRAM
     Route: 048
     Dates: start: 20101005, end: 20101213
  4. FAMOTIDINE [Concomitant]
     Indication: PROPHYLAXIS
     Dosage: 40 MILLIGRAM
     Route: 041
     Dates: start: 20101212, end: 20101227
  5. URIEF [Concomitant]
     Dosage: 8 MILLIGRAM
     Route: 048
     Dates: start: 20100713, end: 20101213
  6. DEXAMETHASONE [Suspect]
     Indication: MULTIPLE MYELOMA
     Dosage: 20 MILLIGRAM
     Route: 048
     Dates: start: 20101130, end: 20101203
  7. UBRETID [Concomitant]
     Dosage: 5 MILLIGRAM
     Route: 048
     Dates: start: 20100713, end: 20101213
  8. BLADDERON [Concomitant]
     Dosage: 200 MILLIGRAM
     Route: 048
     Dates: start: 20070710, end: 20101213
  9. FUNGUARD [Concomitant]
     Indication: PROPHYLAXIS
     Dosage: 50 MILLIGRAM
     Route: 041
     Dates: start: 20101214, end: 20110112
  10. ASPIRIN [Concomitant]
     Indication: PROPHYLAXIS
     Dosage: 100 MILLIGRAM
     Route: 048
     Dates: start: 20101130, end: 20101213
  11. PREDNISOLONE [Concomitant]
     Indication: MULTIPLE MYELOMA
     Dosage: 10 MILLIGRAM
     Route: 048
     Dates: start: 20101028, end: 20101213
  12. MAGMITT [Concomitant]
     Indication: MULTIPLE MYELOMA
     Dosage: 330 MILLIGRAM
     Route: 048
     Dates: start: 20070710, end: 20101213
  13. SULFAMETHOXAZOLE [Concomitant]
     Indication: PROPHYLAXIS
     Dosage: 1 TABLET
     Route: 048
     Dates: start: 20070710, end: 20101213
  14. LASIX [Concomitant]
     Indication: PROPHYLAXIS
     Dosage: 20 MILLIGRAM
     Route: 048
     Dates: start: 20071023, end: 20101213
  15. ITRACONAZOLE [Concomitant]
     Indication: PROPHYLAXIS
     Dosage: 200 MILLIGRAM
     Route: 048
     Dates: start: 20101005, end: 20101213

REACTIONS (9)
  - FEBRILE NEUTROPENIA [None]
  - C-REACTIVE PROTEIN INCREASED [None]
  - PNEUMONIA BACTERIAL [None]
  - BLOOD LACTATE DEHYDROGENASE INCREASED [None]
  - PLATELET COUNT DECREASED [None]
  - HYPOKALAEMIA [None]
  - NEUTROPHIL COUNT DECREASED [None]
  - HYPOXIA [None]
  - WHITE BLOOD CELL COUNT DECREASED [None]
